FAERS Safety Report 8422629-6 (Version None)
Quarter: 2012Q2

REPORT INFORMATION
  Report Type: 
  Country: None (occurrence: None)
  Receive Date: 20120608
  Receipt Date: 20120529
  Transmission Date: 20120825
  Serious: Yes (Other)
  Sender: FDA-Public Use
  Company Number: US-ROCHE-1073560

PATIENT

DRUGS (6)
  1. PEMETREXED DISODIUM [Suspect]
     Indication: FALLOPIAN TUBE CANCER
  2. PEMETREXED DISODIUM [Suspect]
     Indication: OVARIAN EPITHELIAL CANCER
     Route: 042
  3. AVASTIN [Suspect]
     Indication: FALLOPIAN TUBE CANCER
  4. AVASTIN [Suspect]
     Indication: MALIGNANT PERITONEAL NEOPLASM
  5. PEMETREXED DISODIUM [Suspect]
     Indication: MALIGNANT PERITONEAL NEOPLASM
  6. AVASTIN [Suspect]
     Indication: OVARIAN EPITHELIAL CANCER
     Route: 042

REACTIONS (7)
  - THROMBOCYTOPENIA [None]
  - GASTROINTESTINAL TOXICITY [None]
  - ANAEMIA [None]
  - TOXICITY TO VARIOUS AGENTS [None]
  - PAIN [None]
  - NEUTROPENIA [None]
  - LEUKOPENIA [None]
